FAERS Safety Report 9107540 (Version 1)
Quarter: 2013Q1

REPORT INFORMATION
  Report Type: Spontaneous
  Country: BR (occurrence: BR)
  Receive Date: 20130221
  Receipt Date: 20130221
  Transmission Date: 20140127
  Serious: Yes (Other)
  Sender: FDA-Public Use
  Company Number: BR-PFIZER INC-2012027445

PATIENT
  Age: 12 Year
  Sex: Male

DRUGS (2)
  1. GENOTROPIN [Suspect]
     Indication: BLOOD GROWTH HORMONE ABNORMAL
     Dosage: UNK, 6X/WEEK
     Route: 058
     Dates: start: 20110404
  2. GENOTROPIN [Suspect]
     Dosage: 2.4 UNSPECIFIED UNIT 1X/DAY AT NIGHT
     Route: 058
     Dates: start: 2011

REACTIONS (1)
  - Asthma [Unknown]
